FAERS Safety Report 10209828 (Version 1)
Quarter: 2014Q2

REPORT INFORMATION
  Report Type: Spontaneous
  Country: US (occurrence: US)
  Receive Date: 20140602
  Receipt Date: 20140602
  Transmission Date: 20141212
  Serious: Yes (Death)
  Sender: FDA-Public Use
  Company Number: US-CELGENEUS-163-21880-14055332

PATIENT
  Sex: Male
  Weight: 94.33 kg

DRUGS (2)
  1. REVLIMID [Suspect]
     Indication: PLASMA CELL MYELOMA
     Dosage: 25 MILLIGRAM
     Route: 048
     Dates: start: 20140303, end: 20140326
  2. VELCADE [Concomitant]
     Indication: PLASMA CELL MYELOMA
     Route: 050
     Dates: start: 20121009, end: 20140326

REACTIONS (1)
  - Plasma cell myeloma [Fatal]
